FAERS Safety Report 23383159 (Version 3)
Quarter: 2024Q1

REPORT INFORMATION
  Report Type: Spontaneous
  Country: US (occurrence: US)
  Receive Date: 20240109
  Receipt Date: 20240328
  Transmission Date: 20240410
  Serious: Yes (Other)
  Sender: FDA-Public Use
  Company Number: US-PFIZER INC-202201093614

PATIENT
  Age: 73 Year
  Sex: Male
  Weight: 74.83 kg

DRUGS (17)
  1. TIKOSYN [Suspect]
     Active Substance: DOFETILIDE
     Indication: Sinus rhythm
     Dosage: ONE CAPSULE IN THE MORNING AND ONE CAPSULE AT NIGHT
     Dates: start: 20220823
  2. TIKOSYN [Suspect]
     Active Substance: DOFETILIDE
     Indication: Atrial fibrillation
     Dosage: TWICE A DAY, MORNING AND NIGHT
     Route: 048
     Dates: end: 20231211
  3. TIKOSYN [Suspect]
     Active Substance: DOFETILIDE
     Dosage: UNK, 2X/DAY
  4. ELIQUIS [Concomitant]
     Active Substance: APIXABAN
     Dosage: UNK
  5. BENADRYL [Concomitant]
     Active Substance: DIPHENHYDRAMINE HYDROCHLORIDE
     Dosage: UNK
  6. CHOLECALCIFEROL [Concomitant]
     Active Substance: CHOLECALCIFEROL
     Dosage: UNK
  7. DIPHENHYDRAMINE [Concomitant]
     Active Substance: DIPHENHYDRAMINE
     Dosage: UNK
  8. JARDIANCE [Concomitant]
     Active Substance: EMPAGLIFLOZIN
     Dosage: UNK
  9. FENOFIBRATE [Concomitant]
     Active Substance: FENOFIBRATE
     Dosage: UNK
  10. LOVASTATIN [Concomitant]
     Active Substance: LOVASTATIN
     Dosage: UNK
  11. OMEPRAZOLE [Concomitant]
     Active Substance: OMEPRAZOLE
     Dosage: UNK
  12. FLOMAX [Concomitant]
     Active Substance: TAMSULOSIN HYDROCHLORIDE
     Indication: Prostatic disorder
     Dosage: UNK
  13. INSULIN NOS [Concomitant]
     Active Substance: INSULIN NOS
     Dosage: 70 UNITS
  14. INSULIN NOS [Concomitant]
     Active Substance: INSULIN NOS
     Dosage: 84 UNITS
     Dates: start: 202312
  15. METOPROLOL [Concomitant]
     Active Substance: METOPROLOL
     Indication: Heart rate increased
     Dosage: 50 MG
  16. METOPROLOL [Concomitant]
     Active Substance: METOPROLOL
     Dosage: 25 MG
  17. METOPROLOL [Concomitant]
     Active Substance: METOPROLOL
     Dosage: 75 MG
     Dates: start: 202312

REACTIONS (6)
  - Therapeutic product effect decreased [Unknown]
  - Heart rate increased [Unknown]
  - Weight increased [Unknown]
  - Wrong strength [Unknown]
  - Dizziness [Unknown]
  - Glycosylated haemoglobin increased [Unknown]

NARRATIVE: CASE EVENT DATE: 20231201
